FAERS Safety Report 6667693-X (Version None)
Quarter: 2010Q2

REPORT INFORMATION
  Report Type: 
  Country: None (occurrence: None)
  Receive Date: 20100405
  Receipt Date: 20100326
  Transmission Date: 20101027
  Serious: Yes (Other)
  Sender: FDA-Public Use
  Company Number: JP-BRISTOL-MYERS SQUIBB COMPANY-15046485

PATIENT
  Age: 11 Year
  Sex: Male

DRUGS (3)
  1. TAXOL [Suspect]
     Indication: ANGIOSARCOMA
     Dosage: 100 MG/M2 ONCE WEEKLY FOR 3 CONSECUTIVE WEEKS FOLLOWED BY A WEEK REST PERIOD AS ONE CYCLE
     Route: 041
     Dates: start: 20060911
  2. BRIPLATIN [Suspect]
     Indication: ANGIOSARCOMA
     Route: 041
  3. DOXORUBICIN HCL [Suspect]
     Indication: ANGIOSARCOMA
     Route: 042

REACTIONS (2)
  - MALIGNANT NEOPLASM PROGRESSION [None]
  - PNEUMOCEPHALUS [None]
